FAERS Safety Report 18609531 (Version 2)
Quarter: 2020Q4

REPORT INFORMATION
  Report Type: Spontaneous
  Country: JP (occurrence: JP)
  Receive Date: 20201214
  Receipt Date: 20201227
  Transmission Date: 20210114
  Serious: Yes (Death, Other)
  Sender: FDA-Public Use
  Company Number: JP-AMGEN-JPNSP2020151869

PATIENT
  Age: 67 Year
  Sex: Male
  Weight: 65 kg

DRUGS (6)
  1. VECTIBIX [Suspect]
     Active Substance: PANITUMUMAB
     Indication: RECTAL CANCER
     Dosage: 355 MILLIGRAM, Q2WK
     Route: 042
     Dates: start: 20200626, end: 20200716
  2. FLUOROURACIL. [Suspect]
     Active Substance: FLUOROURACIL
     Dosage: 650 MILLIGRAM, Q2WK
     Route: 042
     Dates: start: 20200626, end: 20200813
  3. FLUOROURACIL. [Suspect]
     Active Substance: FLUOROURACIL
     Indication: RECTAL CANCER
     Dosage: 3885 MILLIGRAM
     Route: 042
     Dates: start: 20200626, end: 20200813
  4. VECTIBIX [Suspect]
     Active Substance: PANITUMUMAB
     Dosage: 284 MILLIGRAM
     Route: 042
     Dates: start: 20200730, end: 20200813
  5. ELPLAT [Concomitant]
     Active Substance: OXALIPLATIN
     Indication: RECTAL CANCER
     Dosage: 110 MILLIGRAM, Q2WK
     Route: 042
     Dates: start: 20200626, end: 20200813
  6. LEVOFOLINATE [CALCIUM LEVOFOLINATE] [Suspect]
     Active Substance: LEVOLEUCOVORIN CALCIUM
     Indication: RECTAL CANCER
     Dosage: 320 MILLIGRAM, Q2WEEKS
     Route: 042
     Dates: start: 20200626, end: 20200813

REACTIONS (9)
  - Cholelithiasis [Not Recovered/Not Resolved]
  - Dyspnoea [Unknown]
  - Respiratory failure [Fatal]
  - Stomatitis [Unknown]
  - Diverticulum intestinal [Not Recovered/Not Resolved]
  - Rash [Unknown]
  - Interstitial lung disease [Fatal]
  - Bladder diverticulum [Not Recovered/Not Resolved]
  - Decreased appetite [Unknown]

NARRATIVE: CASE EVENT DATE: 20180104
